FAERS Safety Report 23816883 (Version 1)
Quarter: 2024Q2

REPORT INFORMATION
  Report Type: Spontaneous
  Country: BR (occurrence: BR)
  Receive Date: 20240504
  Receipt Date: 20240504
  Transmission Date: 20240716
  Serious: Yes (Other)
  Sender: FDA-Public Use
  Company Number: BR-002147023-NVSC2024BR089747

PATIENT
  Sex: Female

DRUGS (1)
  1. DIOVAN HCT [Suspect]
     Active Substance: HYDROCHLOROTHIAZIDE\VALSARTAN
     Indication: Product used for unknown indication
     Dosage: 1 DOSAGE FORM, BID
     Route: 065
     Dates: start: 19970407

REACTIONS (6)
  - Hip fracture [Unknown]
  - Drug dependence [Unknown]
  - Lower limb fracture [Unknown]
  - Patella fracture [Unknown]
  - Fall [Unknown]
  - Product availability issue [Unknown]
